FAERS Safety Report 4559729-7 (Version None)
Quarter: 2005Q1

REPORT INFORMATION
  Report Type: 
  Country: None (occurrence: None)
  Receive Date: 20050114
  Receipt Date: 20040219
  Transmission Date: 20050727
  Serious: Yes (Life-Threatening, Hospitalization)
  Sender: FDA-Public Use
  Company Number: BDI-005832

PATIENT
  Age: 32 Year
  Sex: Female

DRUGS (1)
  1. PROHANCE [Suspect]
     Indication: NUCLEAR MAGNETIC RESONANCE IMAGING BRAIN
     Dosage: 20 ML ONCE IV
     Route: 042
     Dates: start: 20040215, end: 20040215

REACTIONS (4)
  - BURNING SENSATION [None]
  - CARDIAC ARREST [None]
  - FEELING HOT [None]
  - LOSS OF CONSCIOUSNESS [None]
